FAERS Safety Report 6769610-0 (Version None)
Quarter: 2010Q2

REPORT INFORMATION
  Report Type: 
  Country: None (occurrence: None)
  Receive Date: 20100615
  Receipt Date: 20100602
  Transmission Date: 20101027
  Serious: Yes (Life-Threatening)
  Sender: FDA-Public Use
  Company Number: JP-SANOFI-AVENTIS-2010SA019202

PATIENT
  Age: 54 Year
  Sex: Male

DRUGS (4)
  1. ELPLAT [Suspect]
     Indication: DRUG USE FOR UNKNOWN INDICATION
  2. CALCIUM LEVOFOLINATE [Suspect]
     Route: 042
  3. FLUOROURACIL [Suspect]
     Route: 040
  4. FLUOROURACIL [Suspect]
     Route: 041

REACTIONS (2)
  - ANAPHYLACTIC SHOCK [None]
  - CARDIAC ARREST [None]
